FAERS Safety Report 8576003-2 (Version None)
Quarter: 2012Q3

REPORT INFORMATION
  Report Type: 
  Country: None (occurrence: None)
  Receive Date: 20120807
  Receipt Date: 20120727
  Transmission Date: 20120928
  Serious: Yes (Hospitalization)
  Sender: FDA-Public Use
  Company Number: IT-TEVA-350797ISR

PATIENT
  Sex: Male

DRUGS (1)
  1. CEFTRIAXONE [Suspect]
     Indication: TOOTH ABSCESS
     Dosage: 1 GRAM DAILY;
     Route: 030
     Dates: start: 20120711, end: 20120711

REACTIONS (1)
  - PRESYNCOPE [None]
